FAERS Safety Report 6786320-4 (Version None)
Quarter: 2010Q2

REPORT INFORMATION
  Report Type: 
  Country: None (occurrence: None)
  Receive Date: 20100621
  Receipt Date: 20100621
  Transmission Date: 20101027
  Serious: Yes (Hospitalization)
  Sender: FDA-Public Use
  Company Number: None

PATIENT
  Age: 55 Year
  Sex: Female
  Weight: 74.9 kg

DRUGS (1)
  1. METRONIDAZOLE [Suspect]
     Indication: COLITIS ULCERATIVE
     Dosage: 500MG Q6 HR IV
     Route: 042
     Dates: start: 20100510, end: 20100510

REACTIONS (5)
  - BODY TEMPERATURE INCREASED [None]
  - HEADACHE [None]
  - MUSCULOSKELETAL STIFFNESS [None]
  - PRODUCT CONTAMINATION MICROBIAL [None]
  - PRODUCT QUALITY ISSUE [None]
